FAERS Safety Report 19408190 (Version 2)
Quarter: 2021Q2

REPORT INFORMATION
  Report Type: Report from Study
  Country: US (occurrence: US)
  Receive Date: 20210611
  Receipt Date: 20210615
  Transmission Date: 20210717
  Serious: Yes (Death)
  Sender: FDA-Public Use
  Company Number: US-PFIZER INC-2021670723

PATIENT

DRUGS (4)
  1. ADRIAMYCIN [Suspect]
     Active Substance: DOXORUBICIN HYDROCHLORIDE
     Indication: SMALL CELL LUNG CANCER
     Dosage: 45 MG/M2, CYCLIC  (DAY 1) EVERY 21 DAYS
     Route: 042
  2. CYTOXAN [Suspect]
     Active Substance: CYCLOPHOSPHAMIDE
     Indication: SMALL CELL LUNG CANCER
     Dosage: 800 MG/M2, CYCLIC (IN 500 ML DEXTROSE 5%/WATER (D5W) AS A 1?HOUR INFUSION, DAY 1) EVERY 21 DAY
     Route: 042
  3. VP?16 [Suspect]
     Active Substance: ETOPOSIDE
     Indication: SMALL CELL LUNG CANCER
     Dosage: 80 MG/M2, CYCLIC (IN 500 ML D5W AS AN INTRAVENOUS INFUSION, DAYS 1 TO 3) EVERY 21 DAYS
     Route: 042
  4. PLATINOL [Suspect]
     Active Substance: CISPLATIN
     Indication: SMALL CELL LUNG CANCER
     Dosage: 33 MG/M2, CYCLIC (IN 250ML NS OVER 30 MINS AFTER HYDRATION W/ AT LEAST 1L OF NS ON DAYS 1?3) Q 21D
     Route: 042

REACTIONS (1)
  - Infection [Fatal]
